FAERS Safety Report 11811735 (Version 2)
Quarter: 2016Q4

REPORT INFORMATION
  Report Type: Spontaneous
  Country: DE (occurrence: DE)
  Receive Date: 20151208
  Receipt Date: 20161114
  Transmission Date: 20170206
  Serious: Yes (Other)
  Sender: FDA-Public Use
  Company Number: DE-SHIRE-DE201515922

PATIENT
  Age: 11 Year
  Sex: Female
  Weight: 31 kg

DRUGS (4)
  1. ELVANSE [Suspect]
     Active Substance: LISDEXAMFETAMINE DIMESYLATE
     Indication: ATTENTION DEFICIT/HYPERACTIVITY DISORDER
     Dosage: 30 MG, 1X/DAY:QD
     Route: 048
     Dates: start: 20151014, end: 20151111
  2. ABILIFY [Concomitant]
     Active Substance: ARIPIPRAZOLE
     Indication: ANTISOCIAL BEHAVIOUR
     Dosage: 7.5 MG, UNKNOWN
     Route: 065
     Dates: start: 2014, end: 20150421
  3. ABILIFY [Concomitant]
     Active Substance: ARIPIPRAZOLE
     Dosage: 5 MG, 1X/DAY:QD
     Route: 065
     Dates: start: 20150422, end: 20151016
  4. ABILIFY [Concomitant]
     Active Substance: ARIPIPRAZOLE
     Dosage: 2.5 MG (HALF 5 MG TABLET), 1X/DAY:QD
     Route: 065
     Dates: start: 20151017, end: 20151018

REACTIONS (1)
  - Parkinsonism [Recovered/Resolved]

NARRATIVE: CASE EVENT DATE: 20151105
